FAERS Safety Report 11553118 (Version 2)
Quarter: 2016Q3

REPORT INFORMATION
  Report Type: Spontaneous
  Country: US (occurrence: US)
  Receive Date: 20150925
  Receipt Date: 20160809
  Transmission Date: 20161109
  Serious: No
  Sender: FDA-Public Use
  Company Number: US-GLAXOSMITHKLINE-US2015GSK103849

PATIENT
  Sex: Female

DRUGS (4)
  1. REQUIP XL [Interacting]
     Active Substance: ROPINIROLE HYDROCHLORIDE
     Dosage: 8 UNK, UNK
  2. AZILECT [Interacting]
     Active Substance: RASAGILINE MESYLATE
     Indication: PRODUCT USED FOR UNKNOWN INDICATION
     Dosage: UNK
  3. REQUIP XL [Interacting]
     Active Substance: ROPINIROLE HYDROCHLORIDE
     Dosage: 4 MG, UNK
  4. REQUIP XL [Suspect]
     Active Substance: ROPINIROLE HYDROCHLORIDE
     Indication: PARKINSON^S DISEASE
     Dosage: 8 MG, U
     Dates: start: 201006

REACTIONS (5)
  - Hallucination [Unknown]
  - Diplopia [Unknown]
  - Therapeutic response unexpected [Unknown]
  - Drug interaction [Unknown]
  - Wrong technique in product usage process [Unknown]
